FAERS Safety Report 9406913 (Version 3)
Quarter: 2013Q3

REPORT INFORMATION
  Report Type: Spontaneous
  Country: US (occurrence: US)
  Receive Date: 20130718
  Receipt Date: 20130918
  Transmission Date: 20140515
  Serious: No
  Sender: FDA-Public Use
  Company Number: US-PFIZER INC-2013208543

PATIENT
  Sex: Female

DRUGS (2)
  1. FLECTOR [Suspect]
     Dosage: UNK, AS NEEDED
  2. FLECTOR [Suspect]
     Dosage: UNK

REACTIONS (3)
  - Product quality issue [Unknown]
  - Rash [Unknown]
  - Skin irritation [Recovered/Resolved]
